FAERS Safety Report 6536932-8 (Version None)
Quarter: 2010Q1

REPORT INFORMATION
  Report Type: 
  Country: None (occurrence: None)
  Receive Date: 20100105
  Receipt Date: 20091223
  Transmission Date: 20100710
  Serious: Yes (Death)
  Sender: FDA-Public Use
  Company Number: A-CH2009-32419

PATIENT
  Age: 74 Year
  Sex: Female

DRUGS (5)
  1. TRACLEER [Suspect]
     Indication: SKIN ULCER
     Dosage: 93.75 , BID, ORAL; 62.5 MG, BID, ORAL
     Route: 048
     Dates: end: 20090923
  2. TRACLEER [Suspect]
     Indication: SKIN ULCER
     Dosage: 93.75 , BID, ORAL; 62.5 MG, BID, ORAL
     Route: 048
     Dates: start: 20070615
  3. CORTICOSTEROID NOS (CORTICOSTEROID NOS) [Concomitant]
  4. CALCIUM CHANNEL BLOCKERS [Concomitant]
  5. CAPTOPRIL [Concomitant]

REACTIONS (3)
  - CARDIAC FAILURE [None]
  - PULMONARY FIBROSIS [None]
  - SCLERODERMA RENAL CRISIS [None]
